FAERS Safety Report 21246613 (Version 1)
Quarter: 2022Q3

REPORT INFORMATION
  Report Type: Spontaneous
  Country: US (occurrence: US)
  Receive Date: 20220824
  Receipt Date: 20220824
  Transmission Date: 20221026
  Serious: No
  Sender: FDA-Public Use
  Company Number: US-AMGEN-USASP2022142311

PATIENT
  Age: 50 Year
  Sex: Female

DRUGS (1)
  1. NPLATE [Suspect]
     Active Substance: ROMIPLOSTIM
     Indication: Product used for unknown indication
     Dosage: 75 MICROGRAM, 125MCG VIAL
     Route: 065

REACTIONS (1)
  - Platelet count abnormal [Unknown]

NARRATIVE: CASE EVENT DATE: 20220729
